FAERS Safety Report 6232852-7 (Version None)
Quarter: 2009Q2

REPORT INFORMATION
  Report Type: 
  Country: None (occurrence: None)
  Receive Date: 20090617
  Receipt Date: 20081004
  Transmission Date: 20091009
  Serious: No
  Sender: FDA-Public Use
  Company Number: US-ASTRAZENECA-2008UW21689

PATIENT
  Age: 47 Year
  Sex: Female

DRUGS (1)
  1. FASLODEX [Suspect]
     Route: 048
     Dates: start: 20080401

REACTIONS (1)
  - ALOPECIA [None]
